APPROVED DRUG PRODUCT: NITRO-DUR
Active Ingredient: NITROGLYCERIN
Strength: 0.3MG/HR
Dosage Form/Route: FILM, EXTENDED RELEASE;TRANSDERMAL
Application: N020145 | Product #003
Applicant: USPHARMA LTD
Approved: Apr 4, 1995 | RLD: Yes | RS: No | Type: RX